FAERS Safety Report 21638681 (Version 1)
Quarter: 2022Q4

REPORT INFORMATION
  Report Type: Spontaneous
  Country: GR (occurrence: GR)
  Receive Date: 20221124
  Receipt Date: 20221124
  Transmission Date: 20230113
  Serious: Yes (Other)
  Sender: FDA-Public Use
  Company Number: GR-ASTELLAS-2022US041189

PATIENT
  Age: 41 Year
  Sex: Female

DRUGS (3)
  1. MICAFUNGIN [Suspect]
     Active Substance: MICAFUNGIN
     Indication: Antifungal prophylaxis
     Dosage: UNK UNK, UNKNOWN FREQ.
     Route: 065
  2. ISAVUCONAZOLE [Interacting]
     Active Substance: ISAVUCONAZOLE
     Indication: Aspergillus infection
     Dosage: UNK UNK, UNKNOWN FREQ.
     Route: 065
  3. PROGESTERONE [Interacting]
     Active Substance: PROGESTERONE
     Indication: Amenorrhoea
     Dosage: UNK UNK, UNKNOWN FREQ.
     Route: 065

REACTIONS (4)
  - Systemic mycosis [Recovering/Resolving]
  - Infection [Recovering/Resolving]
  - Drug interaction [Unknown]
  - Off label use [Unknown]
